FAERS Safety Report 8295591-7 (Version None)
Quarter: 2012Q2

REPORT INFORMATION
  Report Type: 
  Country: None (occurrence: None)
  Receive Date: 20120413
  Receipt Date: 20120413
  Transmission Date: 20120825
  Serious: No
  Sender: FDA-Public Use
  Company Number: None

PATIENT
  Age: 24 Year
  Sex: Male

DRUGS (3)
  1. LAMICTAL [Suspect]
     Indication: LIVER INJURY
     Dates: start: 20110219, end: 20110222
  2. LAMICTAL [Suspect]
     Indication: LIVER INJURY
     Dates: start: 20110216, end: 20110218
  3. LAMICTAL [Suspect]
     Indication: LIVER INJURY
     Dates: start: 20110223, end: 20110316

REACTIONS (8)
  - HEPATOTOXICITY [None]
  - RASH MACULAR [None]
  - LIVER INJURY [None]
  - EOSINOPHIL PERCENTAGE INCREASED [None]
  - HEPATIC STEATOSIS [None]
  - ANTINUCLEAR ANTIBODY POSITIVE [None]
  - UPPER RESPIRATORY TRACT INFECTION [None]
  - WHITE BLOOD CELL COUNT INCREASED [None]
